FAERS Safety Report 7402466-1 (Version None)
Quarter: 2011Q2

REPORT INFORMATION
  Report Type: 
  Country: None (occurrence: None)
  Receive Date: 20110408
  Receipt Date: 20110328
  Transmission Date: 20111010
  Serious: Yes (Other)
  Sender: FDA-Public Use
  Company Number: PHHY2011CA23347

PATIENT
  Sex: Female

DRUGS (4)
  1. CLOZARIL [Suspect]
     Indication: SCHIZOPHRENIA
     Dosage: 25 MG, QD
     Route: 048
     Dates: start: 20110314, end: 20110318
  2. SEROQUEL [Concomitant]
     Dosage: 800 UNK, QHS
  3. FLUPENTIXOL [Concomitant]
     Dosage: 12.5 MG, UNK
  4. ABILIFY [Concomitant]
     Dosage: 15 MG, QD

REACTIONS (2)
  - NEUTROPHIL COUNT DECREASED [None]
  - INFECTIOUS MONONUCLEOSIS [None]
